FAERS Safety Report 14695567 (Version 2)
Quarter: 2018Q2

REPORT INFORMATION
  Report Type: Spontaneous
  Country: IT (occurrence: IT)
  Receive Date: 20180329
  Receipt Date: 20180423
  Transmission Date: 20180711
  Serious: Yes (Hospitalization)
  Sender: FDA-Public Use
  Company Number: IT-TEVA-747834ISR

PATIENT
  Age: 40 Year
  Sex: Female

DRUGS (4)
  1. TRILAFON [Suspect]
     Active Substance: PERPHENAZINE
     Route: 048
     Dates: start: 20161013, end: 20161013
  2. TRILAFON [Suspect]
     Active Substance: PERPHENAZINE
     Dosage: 16 MILLIGRAM DAILY;
     Route: 048
     Dates: start: 20161013, end: 20161013
  3. DULOXETINE. [Suspect]
     Active Substance: DULOXETINE
     Dosage: 600 MILLIGRAM DAILY;
     Route: 048
     Dates: start: 20161013, end: 20161013
  4. CYMBALTA [Suspect]
     Active Substance: DULOXETINE HYDROCHLORIDE
     Dosage: 30 MILLIGRAM DAILY;

REACTIONS (1)
  - Drug abuse [Unknown]

NARRATIVE: CASE EVENT DATE: 20161013
